FAERS Safety Report 10025491 (Version 4)
Quarter: 2014Q3

REPORT INFORMATION
  Report Type: Report from Study
  Country: CN (occurrence: CN)
  Receive Date: 20140320
  Receipt Date: 20140930
  Transmission Date: 20150326
  Serious: Yes (Death)
  Sender: FDA-Public Use
  Company Number: CN-NAPPMUNDI-GBR-2014-0016931

PATIENT
  Age: 70 Year
  Sex: Female
  Weight: 62 kg

DRUGS (1)
  1. OXYCONTIN [Suspect]
     Active Substance: OXYCODONE HYDROCHLORIDE
     Indication: CANCER PAIN
     Dosage: 15 MG, Q12H
     Route: 048
     Dates: start: 20140115, end: 20140120

REACTIONS (1)
  - Malignant neoplasm progression [Fatal]

NARRATIVE: CASE EVENT DATE: 20140121
